FAERS Safety Report 5647958-0 (Version None)
Quarter: 2008Q1

REPORT INFORMATION
  Report Type: 
  Country: None (occurrence: None)
  Receive Date: 20080229
  Receipt Date: 20080221
  Transmission Date: 20080703
  Serious: Yes (Hospitalization)
  Sender: FDA-Public Use
  Company Number: 2007SP025169

PATIENT
  Age: 48 Year
  Sex: Male
  Weight: 77.1115 kg

DRUGS (2)
  1. PEG-INTRON [Suspect]
     Indication: HEPATITIS C
     Dosage: 120 MCG; QW; SC
     Route: 058
     Dates: start: 20070710, end: 20071203
  2. RIBAVIRIN [Suspect]
     Indication: HEPATITIS C
     Dosage: 1200 MG; QD; PO
     Route: 048
     Dates: start: 20070710, end: 20071203

REACTIONS (7)
  - ABDOMINAL PAIN UPPER [None]
  - HELMINTHIC INFECTION [None]
  - INFLUENZA LIKE ILLNESS [None]
  - INSOMNIA [None]
  - PANCYTOPENIA [None]
  - PROSTATOMEGALY [None]
  - WEIGHT DECREASED [None]
